FAERS Safety Report 14704783 (Version 6)
Quarter: 2018Q2

REPORT INFORMATION
  Report Type: Report from Study
  Country: FI (occurrence: FI)
  Receive Date: 20180402
  Receipt Date: 20180521
  Transmission Date: 20180711
  Serious: Yes (Hospitalization)
  Sender: FDA-Public Use
  Company Number: FI-ROCHE-2097713

PATIENT
  Age: 43 Year
  Sex: Female

DRUGS (29)
  1. PANADOL [Concomitant]
     Active Substance: ACETAMINOPHEN
     Indication: CANCER PAIN
     Route: 065
     Dates: start: 20180202
  2. ZANTAC [Concomitant]
     Active Substance: RANITIDINE HYDROCHLORIDE
     Route: 065
     Dates: start: 20180314, end: 20180314
  3. BURANA [Concomitant]
     Active Substance: IBUPROFEN
     Indication: CANCER PAIN
     Route: 065
     Dates: start: 20180202
  4. DEXAMETASON [Concomitant]
     Active Substance: DEXAMETHASONE
     Route: 048
     Dates: start: 20180405, end: 20180417
  5. AKYNZEO [Concomitant]
     Active Substance: NETUPITANT\PALONOSETRON HYDROCHLORIDE
     Dosage: 300/0.5MG
     Route: 065
     Dates: start: 20180404, end: 20180404
  6. OFTAN-AKVAKOL [Concomitant]
     Indication: CONJUNCTIVITIS
     Route: 065
     Dates: start: 20180420
  7. RANIXAL [Concomitant]
     Route: 065
     Dates: start: 20180424, end: 20180424
  8. DEXAMETASON [Concomitant]
     Active Substance: DEXAMETHASONE
     Route: 048
     Dates: start: 20180425
  9. AKYNZEO [Concomitant]
     Active Substance: NETUPITANT\PALONOSETRON HYDROCHLORIDE
     Dosage: 300/0.5MG
     Route: 065
     Dates: start: 20180424, end: 20180424
  10. CETIRIZIN [Concomitant]
     Active Substance: CETIRIZINE HYDROCHLORIDE
     Route: 065
     Dates: start: 20180314, end: 20180314
  11. LOPEX [Concomitant]
     Indication: DIARRHOEA
     Route: 065
     Dates: start: 20180319
  12. ATEZOLIZUMAB. [Suspect]
     Active Substance: ATEZOLIZUMAB
     Indication: OVARIAN CANCER
     Dosage: MOST RECENT DOSE OF BLINDED ATEZOLIZUMAB: 14/MAR/2018
     Route: 042
     Dates: start: 20180314
  13. CARBOPLATIN. [Suspect]
     Active Substance: CARBOPLATIN
     Indication: OVARIAN CANCER
     Dosage: MOST RECENT DOSE OF CARBOPLATIN: 14/MAR/2018?AT A DOSE TO ACHIEVE A TARGET AREA UNDER THE CURVE (AUC
     Route: 042
     Dates: start: 20180314
  14. AVAMYS [Concomitant]
     Active Substance: FLUTICASONE FUROATE
     Indication: NASAL DRYNESS
  15. TENOX (FINLAND) [Concomitant]
     Indication: ANXIETY
     Route: 065
     Dates: start: 20170309
  16. CETIRIZIN [Concomitant]
     Active Substance: CETIRIZINE HYDROCHLORIDE
     Route: 065
     Dates: start: 20180404, end: 20180404
  17. CETIRIZIN [Concomitant]
     Active Substance: CETIRIZINE HYDROCHLORIDE
     Route: 065
     Dates: start: 20180424, end: 20180424
  18. DEXAMETASON [Concomitant]
     Active Substance: DEXAMETHASONE
     Route: 048
     Dates: start: 20180329, end: 20180403
  19. DEXAMETASON [Concomitant]
     Active Substance: DEXAMETHASONE
     Route: 048
     Dates: start: 20180403, end: 20180404
  20. DEXAMETASON [Concomitant]
     Active Substance: DEXAMETHASONE
     Route: 048
     Dates: start: 20180423, end: 20180424
  21. ZANTAC [Concomitant]
     Active Substance: RANITIDINE HYDROCHLORIDE
     Route: 065
     Dates: start: 20180404, end: 20180404
  22. SERTRALINE [Concomitant]
     Active Substance: SERTRALINE HYDROCHLORIDE
     Indication: ANXIETY
     Route: 065
  23. AKYNZEO [Concomitant]
     Active Substance: NETUPITANT\PALONOSETRON HYDROCHLORIDE
     Dosage: 300/0.5MG
     Route: 065
     Dates: start: 20180314, end: 20180314
  24. DEXAMETASON [Concomitant]
     Active Substance: DEXAMETHASONE
     Indication: RASH
     Route: 048
     Dates: start: 20180313, end: 20180313
  25. DEXAMETASON [Concomitant]
     Active Substance: DEXAMETHASONE
     Route: 048
     Dates: start: 20180314, end: 20180314
  26. BEVACIZUMAB. [Suspect]
     Active Substance: BEVACIZUMAB
     Indication: OVARIAN CANCER
     Dosage: MOST RECENT DOSE OF BEVACIZUMAB: 14/MAR/2018 (1100 MG)
     Route: 042
     Dates: start: 20180314
  27. PACLITAXEL. [Suspect]
     Active Substance: PACLITAXEL
     Indication: OVARIAN CANCER
     Dosage: MOST RECENT DOSE OF PACLITAXEL: 14/MAR/2018 (310 MG)
     Route: 042
     Dates: start: 20180314
  28. OXYNORM [Concomitant]
     Active Substance: OXYCODONE HYDROCHLORIDE
     Indication: CANCER PAIN
     Route: 065
     Dates: start: 20180209
  29. TARGINIQ ER [Concomitant]
     Active Substance: NALOXONE HYDROCHLORIDE\OXYCODONE HYDROCHLORIDE
     Indication: CANCER PAIN
     Dosage: 5/2,5MG
     Route: 065
     Dates: start: 20180209

REACTIONS (1)
  - Febrile neutropenia [Recovered/Resolved]

NARRATIVE: CASE EVENT DATE: 20180325
